FAERS Safety Report 18187517 (Version 1)
Quarter: 2020Q3

REPORT INFORMATION
  Report Type: Other
  Country: GB (occurrence: GB)
  Receive Date: 20200824
  Receipt Date: 20200824
  Transmission Date: 20201103
  Serious: Yes (Hospitalization, Disabling)
  Sender: FDA-Public Use
  Company Number: GB-MACLEODS PHARMACEUTICALS US LTD-MAC2020027757

PATIENT

DRUGS (2)
  1. CLOPIDOGREL [Suspect]
     Active Substance: CLOPIDOGREL BISULFATE
     Indication: PRODUCT USED FOR UNKNOWN INDICATION
     Dosage: 75 MILLIGRAM, QD (HELD ON ADMISSION)
     Route: 048
  2. ATORVASTATIN 20 MG TABLETS [Suspect]
     Active Substance: ATORVASTATIN CALCIUM
     Indication: PRODUCT USED FOR UNKNOWN INDICATION
     Dosage: 20 MILLIGRAM, QD (AT NIGHT ? WAS NOT TAKING BEFORE OR DURING ADMISSION)
     Route: 048

REACTIONS (8)
  - Haemorrhage intracranial [Recovered/Resolved]
  - Hemiparesis [Unknown]
  - Cerebral atrophy [Unknown]
  - Facial paralysis [Unknown]
  - Brain oedema [Unknown]
  - Intracranial mass [Unknown]
  - Visual impairment [Unknown]
  - Cerebral ischaemia [Unknown]

NARRATIVE: CASE EVENT DATE: 20191213
